FAERS Safety Report 7265643-9 (Version None)
Quarter: 2011Q1

REPORT INFORMATION
  Report Type: 
  Country: None (occurrence: None)
  Receive Date: 20110120
  Receipt Date: 20110106
  Transmission Date: 20110831
  Serious: Yes (Death)
  Sender: FDA-Public Use
  Company Number: OPIR20100048

PATIENT
  Age: 47 Year
  Sex: Male

DRUGS (2)
  1. ETHANOL (ETHANOL) (UNKNOWN) [Suspect]
     Indication: PRODUCT USED FOR UNKNOWN INDICATION
     Dosage: ORAL
     Route: 048
  2. OPANA [Suspect]
     Indication: PRODUCT USED FOR UNKNOWN INDICATION
     Dosage: , ORAL
     Route: 048

REACTIONS (8)
  - TOXICITY TO VARIOUS AGENTS [None]
  - DEPRESSED LEVEL OF CONSCIOUSNESS [None]
  - RESPIRATORY DEPRESSION [None]
  - HEPATIC STEATOSIS [None]
  - CARDIOMEGALY [None]
  - MULTIPLE DRUG OVERDOSE ACCIDENTAL [None]
  - UNRESPONSIVE TO STIMULI [None]
  - ACCIDENTAL DEATH [None]
